FAERS Safety Report 9423663 (Version 2)
Quarter: 2013Q3

REPORT INFORMATION
  Report Type: Spontaneous
  Country: US (occurrence: US)
  Receive Date: 20130726
  Receipt Date: 20130808
  Transmission Date: 20140515
  Serious: Yes (Hospitalization)
  Sender: FDA-Public Use
  Company Number: US-JNJFOC-20130705036

PATIENT
  Age: 75 Year
  Sex: Male
  Weight: 96.16 kg

DRUGS (13)
  1. IMODIUM MULTI SYMPTOM RELIEF [Suspect]
     Route: 048
  2. IMODIUM MULTI SYMPTOM RELIEF [Suspect]
     Indication: DIARRHOEA
     Route: 048
     Dates: start: 20041001
  3. NOVOLIN N INSULIN [Concomitant]
     Indication: DIABETES MELLITUS
     Dosage: 9 YEARS
     Route: 065
     Dates: start: 20040107
  4. LOTREL [Concomitant]
     Indication: HYPERTENSION
     Dosage: 10/40 FOR 5YEARS
     Route: 065
     Dates: start: 20080107
  5. LANTUS INSULIN [Concomitant]
     Indication: DIABETES MELLITUS
     Dosage: 5 YRS
     Route: 065
     Dates: start: 20080107
  6. TOPROL XL [Concomitant]
     Indication: HYPERTENSION
     Dosage: 5 YRS
     Route: 065
     Dates: start: 20080107
  7. PREVACID [Concomitant]
     Indication: GASTROOESOPHAGEAL REFLUX DISEASE
     Dosage: 5 YEARS
     Route: 065
     Dates: start: 20080107
  8. CRESTOR [Concomitant]
     Indication: BLOOD CHOLESTEROL
     Dosage: 1/2 3XPER WK FOR 5 YEARS
     Route: 065
     Dates: start: 20080107
  9. COUMADIN [Concomitant]
     Indication: ANTICOAGULANT THERAPY
     Dosage: 9 YEARS
     Route: 065
     Dates: start: 20040107
  10. SYNTHROID [Concomitant]
     Indication: DIABETES MELLITUS
     Dosage: 9 YEARS
     Route: 065
     Dates: start: 20040107
  11. OXYGEN [Concomitant]
     Indication: ASBESTOSIS
     Dosage: DOSAGE 3 AND 4 FOR 3YRS
     Route: 065
     Dates: start: 20100107
  12. ALBUTEROL [Concomitant]
     Indication: ASBESTOSIS
     Dosage: 3 YRS AS NECESSARY
     Route: 065
     Dates: start: 20100107
  13. SPIRIVA [Concomitant]
     Indication: ASBESTOSIS
     Dosage: 3YRS
     Route: 065
     Dates: start: 20100107

REACTIONS (2)
  - Gastrointestinal obstruction [Recovered/Resolved]
  - Drug effect decreased [Not Recovered/Not Resolved]
